FAERS Safety Report 7875705-0 (Version None)
Quarter: 2011Q4

REPORT INFORMATION
  Report Type: 
  Country: None (occurrence: None)
  Receive Date: 20111031
  Receipt Date: 20111027
  Transmission Date: 20120403
  Serious: Yes (Death, Hospitalization, Disabling, Other)
  Sender: FDA-Public Use
  Company Number: US-TEVA-306951USA

PATIENT
  Sex: Female

DRUGS (2)
  1. PROPOXYPHENE NAPSYLATE W/ ACETAMINOPHEN [Suspect]
     Indication: PAIN MANAGEMENT
  2. PROPACET 100 [Suspect]
     Indication: PAIN MANAGEMENT

REACTIONS (5)
  - SUDDEN DEATH [None]
  - ARRHYTHMIA [None]
  - MYOCARDIAL INFARCTION [None]
  - CEREBROVASCULAR ACCIDENT [None]
  - CARDIOVASCULAR DISORDER [None]
